FAERS Safety Report 7247292-1 (Version None)
Quarter: 2011Q1

REPORT INFORMATION
  Report Type: 
  Country: None (occurrence: None)
  Receive Date: 20110127
  Receipt Date: 20110119
  Transmission Date: 20110831
  Serious: Yes (Other)
  Sender: FDA-Public Use
  Company Number: A0909271A

PATIENT
  Sex: Male

DRUGS (2)
  1. COREG [Suspect]
     Route: 065
  2. LANTUS [Suspect]
     Route: 058

REACTIONS (2)
  - LOSS OF CONSCIOUSNESS [None]
  - DRUG INTERACTION [None]
